FAERS Safety Report 7917169-4 (Version None)
Quarter: 2011Q4

REPORT INFORMATION
  Report Type: 
  Country: None (occurrence: None)
  Receive Date: 20111116
  Receipt Date: 20091103
  Transmission Date: 20120403
  Serious: No
  Sender: FDA-Public Use
  Company Number: ENDO PHARMACEUTICALS INC.-PRED20110120

PATIENT
  Sex: Female

DRUGS (6)
  1. COPAXONE [Concomitant]
     Indication: MULTIPLE SCLEROSIS
  2. PREDNISONE [Suspect]
     Indication: MULTIPLE SCLEROSIS RELAPSE
     Route: 048
     Dates: start: 20090908, end: 20090929
  3. LEVOTHYROXINE SODIUM [Concomitant]
  4. PROTONIX [Concomitant]
  5. MOBIC [Concomitant]
  6. NEURONTIN [Concomitant]

REACTIONS (10)
  - DYSPNOEA [None]
  - BLOOD PRESSURE INCREASED [None]
  - HYPOKALAEMIA [None]
  - DECREASED APPETITE [None]
  - LETHARGY [None]
  - CHEST PAIN [None]
  - COUGH [None]
  - ASTHENIA [None]
  - SWELLING FACE [None]
  - HYPERHIDROSIS [None]
